FAERS Safety Report 20407425 (Version 1)
Quarter: 2022Q1

REPORT INFORMATION
  Report Type: Spontaneous
  Country: US (occurrence: US)
  Receive Date: 20220131
  Receipt Date: 20220131
  Transmission Date: 20220423
  Serious: Yes (Disabling, Other)
  Sender: FDA-Public Use
  Company Number: US-009507513-2201USA002995

PATIENT
  Age: 83 Year
  Sex: Male
  Weight: 53 kg

DRUGS (5)
  1. VERQUVO [Suspect]
     Active Substance: VERICIGUAT
     Indication: Cardiac failure congestive
     Dosage: UNK UNK, BID
     Route: 048
     Dates: start: 20210521
  2. ENTRESTO [Concomitant]
     Active Substance: SACUBITRIL\VALSARTAN
     Indication: Cardiac failure congestive
     Dosage: 48/52 MG, DAILY
     Route: 048
     Dates: start: 2014
  3. COREG [Concomitant]
     Active Substance: CARVEDILOL
     Indication: Cardiac failure congestive
     Dosage: 3.125 MILLIGRAM, BID
     Route: 048
     Dates: start: 2010
  4. AMIODARONE [Concomitant]
     Active Substance: AMIODARONE
     Indication: Cardiac failure congestive
     Dosage: 200 MILLIGRAM, DAILY
     Route: 048
     Dates: start: 2020
  5. JANUVIA [Concomitant]
     Active Substance: SITAGLIPTIN PHOSPHATE
     Indication: Diabetes mellitus
     Dosage: 100 MG, DAILY
     Route: 048
     Dates: start: 2008

REACTIONS (5)
  - Atrial fibrillation [Not Recovered/Not Resolved]
  - Cachexia [Unknown]
  - Asthenia [Unknown]
  - Weight decreased [Unknown]
  - Atrial flutter [Unknown]

NARRATIVE: CASE EVENT DATE: 20210901
